FAERS Safety Report 6058043-0 (Version None)
Quarter: 2009Q1

REPORT INFORMATION
  Report Type: 
  Country: None (occurrence: None)
  Receive Date: 20090127
  Receipt Date: 20090119
  Transmission Date: 20090719
  Serious: Yes (Hospitalization, Other)
  Sender: FDA-Public Use
  Company Number: 2009SP001261

PATIENT
  Age: 48 Year
  Sex: Female

DRUGS (3)
  1. PEG-INTRON [Suspect]
     Indication: HEPATITIS C
     Dosage: SC
     Route: 058
     Dates: start: 20081014
  2. REBETOL [Suspect]
     Indication: HEPATITIS C
     Dosage: PO
     Route: 048
     Dates: start: 20081014
  3. SULFA [Suspect]
     Indication: CELLULITIS

REACTIONS (11)
  - ANXIETY [None]
  - BLOOD POTASSIUM DECREASED [None]
  - CELLULITIS STAPHYLOCOCCAL [None]
  - CONFUSIONAL STATE [None]
  - DRUG HYPERSENSITIVITY [None]
  - INSOMNIA [None]
  - LIMB INJURY [None]
  - MALAISE [None]
  - MEMORY IMPAIRMENT [None]
  - SCRATCH [None]
  - WHITE BLOOD CELL COUNT DECREASED [None]
